FAERS Safety Report 8430523-X (Version None)
Quarter: 2012Q2

REPORT INFORMATION
  Report Type: 
  Country: None (occurrence: None)
  Receive Date: 20120612
  Receipt Date: 20120605
  Transmission Date: 20120825
  Serious: Yes (Death, Congenital Anomaly)
  Sender: FDA-Public Use
  Company Number: US-VIIV HEALTHCARE LIMITED-A0910745A

PATIENT

DRUGS (2)
  1. KALETRA [Suspect]
     Indication: HIV INFECTION
     Dosage: 4TAB PER DAY
     Route: 064
     Dates: start: 20100830
  2. COMBIVIR [Suspect]
     Indication: HIV INFECTION
     Dosage: 2TAB PER DAY
     Route: 064
     Dates: start: 20100830

REACTIONS (9)
  - SEPSIS [None]
  - CONGENITAL AORTIC STENOSIS [None]
  - DANDY-WALKER SYNDROME [None]
  - HEART DISEASE CONGENITAL [None]
  - FOETAL HEART RATE ABNORMAL [None]
  - TALIPES [None]
  - FOETAL EXPOSURE DURING PREGNANCY [None]
  - CONGENITAL PULMONARY ARTERY ANOMALY [None]
  - PREMATURE BABY [None]
